FAERS Safety Report 24357695 (Version 1)
Quarter: 2024Q3

REPORT INFORMATION
  Report Type: Spontaneous
  Country: US (occurrence: US)
  Receive Date: 20240924
  Receipt Date: 20240924
  Transmission Date: 20241017
  Serious: No
  Sender: DR REDDYS
  Company Number: None

PATIENT
  Age: 73 Year
  Sex: Male
  Weight: 72.1 kg

DRUGS (4)
  1. ROPINIROLE [Suspect]
     Active Substance: ROPINIROLE
     Indication: Parkinson^s disease
     Dosage: ROPINIROLE 3 MG TWICE DAILY
  2. SINEMET [Concomitant]
     Active Substance: CARBIDOPA\LEVODOPA
     Indication: Parkinson^s disease
     Dosage: LEVODOPA-CARBIDOPA (SINEMET IR) 100-25 MG FOUR TIMES A DAY?IMMEDIATE RELEASE
  3. SINEMET [Concomitant]
     Active Substance: CARBIDOPA\LEVODOPA
     Dosage: SINEMET IR WAS REDUCED TO 100-25 MG THREE TIMES A DAY
  4. STALEVO [Concomitant]
     Active Substance: CARBIDOPA\ENTACAPONE\LEVODOPA
     Indication: Parkinson^s disease
     Dosage: CARBIDOPA-LEVODOPA-ENTACAPONE (STALEVO) 37.5-150-200 MG FOUR TIMES A DAY??STALEVO WAS DISCONTINUED

REACTIONS (1)
  - Dyskinesia [Unknown]
